FAERS Safety Report 4339790-5 (Version None)
Quarter: 2004Q2

REPORT INFORMATION
  Report Type: 
  Country: None (occurrence: None)
  Receive Date: 20040414
  Receipt Date: 20040414
  Transmission Date: 20050107
  Serious: Yes (Other)
  Sender: FDA-Public Use
  Company Number: None

PATIENT
  Sex: Female
  Weight: 81.6475 kg

DRUGS (2)
  1. NICARDIPINE HCL [Suspect]
     Indication: ANGINA PECTORIS
     Dosage: 20 MG TID PO
     Route: 048
     Dates: start: 20010417
  2. NICARDIPINE HCL [Suspect]
     Indication: HYPERTENSION
     Dosage: 20 MG TID PO
     Route: 048
     Dates: start: 20010417

REACTIONS (2)
  - PHARMACEUTICAL PRODUCT COMPLAINT [None]
  - RASH PRURITIC [None]
